FAERS Safety Report 4599217-5 (Version None)
Quarter: 2005Q1

REPORT INFORMATION
  Report Type: 
  Country: None (occurrence: None)
  Receive Date: 20050127
  Receipt Date: 20041027
  Transmission Date: 20050727
  Serious: No
  Sender: FDA-Public Use
  Company Number: USA041082434

PATIENT
  Age: 77 Year
  Sex: Male
  Weight: 79 kg

DRUGS (8)
  1. STRATTERA [Suspect]
     Indication: ATTENTION DEFICIT/HYPERACTIVITY DISORDER
     Dosage: 100 MG DAY
     Dates: start: 20041001
  2. ZOCOR (SIMVASTATIN RATIOPHARM) [Concomitant]
  3. LISINOPRIL [Concomitant]
  4. OMEPRAZOLE [Concomitant]
  5. VITAMIN [Concomitant]
  6. AGGRENOX [Concomitant]
  7. FOLIC ACID [Concomitant]
  8. IRON [Concomitant]

REACTIONS (1)
  - MEDICATION ERROR [None]
